FAERS Safety Report 16481858 (Version 2)
Quarter: 2021Q4

REPORT INFORMATION
  Report Type: Spontaneous
  Country: CA (occurrence: CA)
  Receive Date: 20190627
  Receipt Date: 20211109
  Transmission Date: 20220303
  Serious: Yes (Hospitalization, Other)
  Sender: FDA-Public Use
  Company Number: CA-AUROBINDO-AUR-APL-2019-035365

PATIENT
  Age: 21 Year
  Sex: Male

DRUGS (1)
  1. OLANZAPINE [Suspect]
     Active Substance: OLANZAPINE
     Indication: Bipolar disorder
     Dosage: UNK, DAILY
     Route: 060

REACTIONS (5)
  - Aggression [Recovered/Resolved]
  - Bipolar disorder [Recovered/Resolved]
  - Chest pain [Recovered/Resolved]
  - Product substitution issue [Recovered/Resolved]
  - Vomiting [Recovered/Resolved]
